FAERS Safety Report 13416704 (Version 1)
Quarter: 2017Q2

REPORT INFORMATION
  Report Type: Report from Study
  Country: US (occurrence: US)
  Receive Date: 20170407
  Receipt Date: 20170407
  Transmission Date: 20170830
  Serious: Yes (Hospitalization, Other)
  Sender: FDA-Public Use
  Company Number: US-BAXALTA-2017BLT002639

PATIENT
  Age: 54 Year
  Sex: Female
  Weight: 48.8 kg

DRUGS (3)
  1. HYQVIA [Suspect]
     Active Substance: HUMAN IMMUNOGLOBULIN G\HYALURONIDASE RECOMBINANT HUMAN
     Indication: PRIMARY IMMUNODEFICIENCY SYNDROME
     Dosage: 12.5 G, 1X A MONTH
     Route: 058
     Dates: start: 20170323
  2. HYQVIA [Suspect]
     Active Substance: HUMAN IMMUNOGLOBULIN G\HYALURONIDASE RECOMBINANT HUMAN
     Dosage: 12.5 G, 1X A MONTH
     Route: 058
     Dates: start: 20161129, end: 20170323
  3. HYQVIA [Suspect]
     Active Substance: HUMAN IMMUNOGLOBULIN G\HYALURONIDASE RECOMBINANT HUMAN
     Dosage: RAMP UP DOSE
     Route: 058
     Dates: start: 20160915, end: 20161129

REACTIONS (8)
  - Respiratory failure [Recovered/Resolved]
  - Chest pain [Recovered/Resolved]
  - Dyspnoea [Recovered/Resolved]
  - Viral upper respiratory tract infection [Recovering/Resolving]
  - Hypotension [Recovered/Resolved]
  - Influenza [Recovering/Resolving]
  - Acute myocardial infarction [Recovered/Resolved]
  - Pneumonia [Not Recovered/Not Resolved]

NARRATIVE: CASE EVENT DATE: 20170325
